FAERS Safety Report 8328929-2 (Version None)
Quarter: 2012Q2

REPORT INFORMATION
  Report Type: 
  Country: None (occurrence: None)
  Receive Date: 20120502
  Receipt Date: 20100930
  Transmission Date: 20120825
  Serious: No
  Sender: FDA-Public Use
  Company Number: US-TEVA-2010005207

PATIENT
  Sex: Male
  Weight: 79.45 kg

DRUGS (4)
  1. MOTRIN [Concomitant]
     Indication: PAIN
  2. NUVIGIL [Suspect]
     Indication: FATIGUE
     Dosage: 125 MILLIGRAM;
     Route: 048
     Dates: start: 20100929
  3. HYDROCODONE BITARTRATE [Concomitant]
     Indication: PAIN
     Dates: start: 20040101
  4. REBIF [Concomitant]
     Indication: MULTIPLE SCLEROSIS
     Dates: start: 20040101

REACTIONS (1)
  - INSOMNIA [None]
